FAERS Safety Report 23314698 (Version 1)
Quarter: 2023Q4

REPORT INFORMATION
  Report Type: Spontaneous
  Country: US (occurrence: US)
  Receive Date: 20231219
  Receipt Date: 20231219
  Transmission Date: 20240109
  Serious: No
  Sender: FDA-Public Use
  Company Number: US-PFIZER INC-202300271135

PATIENT
  Age: 14 Year
  Sex: Male
  Weight: 41.73 kg

DRUGS (3)
  1. GENOTROPIN [Suspect]
     Active Substance: SOMATROPIN
     Indication: Growth hormone deficiency
     Dosage: 1.5 MG, DAILY
  2. GENOTROPIN [Suspect]
     Active Substance: SOMATROPIN
     Dosage: 1.6 (ONCE A DAY. BUT ONE DAY AT 1.6 AND THEN NEXT DAY IS 1.4, I MEAN ALTERNATE, ONE TIME A DAY, NIGH
  3. GENOTROPIN [Suspect]
     Active Substance: SOMATROPIN
     Dosage: 1.4 (ONCE A DAY. BUT ONE DAY AT 1.6 AND THEN NEXT DAY IS 1.4, I MEAN ALTERNATE, ONE TIME A DAY, NIGH

REACTIONS (3)
  - Product prescribing error [Unknown]
  - Device use issue [Unknown]
  - Device leakage [Unknown]
